FAERS Safety Report 5379373-1 (Version None)
Quarter: 2007Q3

REPORT INFORMATION
  Report Type: 
  Country: None (occurrence: None)
  Receive Date: 20070705
  Receipt Date: 20070626
  Transmission Date: 20080115
  Serious: Yes (Hospitalization)
  Sender: FDA-Public Use
  Company Number: BE-ABBOTT-07P-013-0367024-00

PATIENT
  Sex: Female

DRUGS (2)
  1. NORVIR [Suspect]
     Indication: HIV INFECTION
  2. SAQUINAVIR MESILATE [Concomitant]
     Indication: HIV INFECTION

REACTIONS (7)
  - AFFECTIVE DISORDER [None]
  - BIPOLAR I DISORDER [None]
  - CONFUSIONAL STATE [None]
  - INSOMNIA [None]
  - LOGORRHOEA [None]
  - MALNUTRITION [None]
  - PERSONALITY DISORDER [None]
